FAERS Safety Report 7465705-7 (Version None)
Quarter: 2011Q2

REPORT INFORMATION
  Report Type: 
  Country: None (occurrence: None)
  Receive Date: 20110509
  Receipt Date: 20110502
  Transmission Date: 20111010
  Serious: Yes (Hospitalization)
  Sender: FDA-Public Use
  Company Number: B0714937A

PATIENT
  Sex: Female
  Weight: 96 kg

DRUGS (13)
  1. HYDROCORTISONE [Concomitant]
     Route: 065
  2. NOVORAPID [Concomitant]
     Route: 058
     Dates: end: 20110305
  3. LASIX [Concomitant]
     Route: 065
  4. LEVOTHYROX [Concomitant]
     Route: 065
  5. EFFERALGAN [Concomitant]
     Route: 065
  6. ROCALTROL [Concomitant]
     Indication: HYPOPARATHYROIDISM
     Dosage: .25MCG TWICE PER DAY
     Route: 048
     Dates: end: 20110306
  7. SPASMOPRIV [Concomitant]
     Indication: PAIN
     Dosage: 100MG THREE TIMES PER DAY
     Route: 048
     Dates: end: 20110302
  8. INSULATARD [Concomitant]
     Route: 065
  9. ARIXTRA [Suspect]
     Dosage: 10MG PER DAY
     Route: 058
     Dates: start: 20110224, end: 20110301
  10. TRIATEC [Concomitant]
     Indication: PROPHYLAXIS
     Dosage: 5MG TWICE PER DAY
     Route: 048
     Dates: end: 20110303
  11. CRESTOR [Concomitant]
     Route: 065
  12. SINTROM [Suspect]
     Indication: DEEP VEIN THROMBOSIS
     Route: 048
     Dates: end: 20110224
  13. OMEPRAZOLE [Concomitant]
     Route: 065

REACTIONS (7)
  - SCIATICA [None]
  - DRUG INTERACTION [None]
  - INFLAMMATION [None]
  - OVERDOSE [None]
  - HAEMORRHAGIC ANAEMIA [None]
  - ABDOMINAL WALL HAEMATOMA [None]
  - MUSCLE HAEMORRHAGE [None]
